FAERS Safety Report 5146749-7 (Version None)
Quarter: 2006Q4

REPORT INFORMATION
  Report Type: 
  Country: None (occurrence: None)
  Receive Date: 20061109
  Receipt Date: 20060612
  Transmission Date: 20070319
  Serious: Yes (Other)
  Sender: FDA-Public Use
  Company Number: US-GLAXOSMITHKLINE-A0608580A

PATIENT
  Age: 47 Year
  Sex: Male

DRUGS (2)
  1. CITRUCEL SUGAR-FREE SUSPENSION ORANGE [Suspect]
     Indication: GASTROINTESTINAL DISORDER
  2. LIPITOR [Concomitant]

REACTIONS (1)
  - RECTAL HAEMORRHAGE [None]
